FAERS Safety Report 4616236-0 (Version None)
Quarter: 2005Q1

REPORT INFORMATION
  Report Type: 
  Country: None (occurrence: None)
  Receive Date: 20050321
  Receipt Date: 20050309
  Transmission Date: 20050727
  Serious: Yes (Hospitalization)
  Sender: FDA-Public Use
  Company Number: S05-USA-01342-01

PATIENT
  Age: 45 Year
  Sex: Male

DRUGS (11)
  1. LEXAPRO [Suspect]
     Indication: AGITATION
     Dosage: 20 MG QD PO
     Route: 048
     Dates: start: 20050101, end: 20050222
  2. LEXAPRO [Suspect]
     Indication: ANXIETY
     Dosage: 20 MG QD PO
     Route: 048
     Dates: start: 20050101, end: 20050222
  3. LEXAPRO [Suspect]
     Indication: AGITATION
     Dosage: 10 MG QD PO
     Route: 048
     Dates: start: 20050223, end: 20050227
  4. LEXAPRO [Suspect]
     Indication: ANXIETY
     Dosage: 10 MG QD PO
     Route: 048
     Dates: start: 20050223, end: 20050227
  5. LEXAPRO [Suspect]
     Indication: AGITATION
     Dosage: 20 MG QD PO
     Route: 048
     Dates: start: 20050228
  6. LEXAPRO [Suspect]
     Indication: ANXIETY
     Dosage: 20 MG QD PO
     Route: 048
     Dates: start: 20050228
  7. LEXAPRO [Suspect]
     Indication: AGITATION
     Dosage: 5 MG QD PO
     Route: 048
     Dates: start: 20041101, end: 20040101
  8. LEXAPRO [Suspect]
     Indication: ANXIETY
     Dosage: 5 MG QD PO
     Route: 048
     Dates: start: 20041101, end: 20040101
  9. LEXAPRO [Suspect]
     Indication: AGITATION
     Dosage: 10 MG QD PO
     Route: 048
     Dates: start: 20040101, end: 20050101
  10. LEXAPRO [Suspect]
     Indication: ANXIETY
     Dosage: 10 MG QD PO
     Route: 048
     Dates: start: 20040101, end: 20050101
  11. MELLARIL [Concomitant]

REACTIONS (5)
  - CONCUSSION [None]
  - CONVULSION [None]
  - FALL [None]
  - HYPONATRAEMIA [None]
  - SKIN LACERATION [None]
